FAERS Safety Report 5729624-6 (Version None)
Quarter: 2008Q2

REPORT INFORMATION
  Report Type: 
  Country: None (occurrence: None)
  Receive Date: 20080501
  Receipt Date: 20080422
  Transmission Date: 20081010
  Serious: Yes (Death)
  Sender: FDA-Public Use
  Company Number: 2008SP007518

PATIENT

DRUGS (1)
  1. NOXAFIL [Suspect]
     Indication: ACUTE MYELOID LEUKAEMIA

REACTIONS (1)
  - DEATH [None]
